FAERS Safety Report 21424632 (Version 2)
Quarter: 2022Q4

REPORT INFORMATION
  Report Type: Spontaneous
  Country: US (occurrence: US)
  Receive Date: 20221007
  Receipt Date: 20221018
  Transmission Date: 20230113
  Serious: Yes (Other)
  Sender: FDA-Public Use
  Company Number: US-BRISTOL-MYERS SQUIBB COMPANY-2022-117247

PATIENT
  Age: 82 Year
  Sex: Female
  Weight: 68.04 kg

DRUGS (1)
  1. REVLIMID [Suspect]
     Active Substance: LENALIDOMIDE
     Indication: Plasma cell myeloma
     Dosage: FREQ: EVERY DAY 21 DAYS FOLLOWED BY 7 DAYS OFF
     Route: 048
     Dates: start: 20221004

REACTIONS (13)
  - Flushing [Recovered/Resolved]
  - Feeling jittery [Recovered/Resolved]
  - Muscle spasms [Recovering/Resolving]
  - Pruritus [Recovered/Resolved]
  - Back pain [Recovering/Resolving]
  - Pain [Unknown]
  - Lumbar vertebral fracture [Unknown]
  - Restless legs syndrome [Unknown]
  - Neuropathy peripheral [Unknown]
  - Nausea [Unknown]
  - Appetite disorder [Unknown]
  - Platelet count decreased [Unknown]
  - Anxiety [Unknown]

NARRATIVE: CASE EVENT DATE: 20221004
